FAERS Safety Report 25588977 (Version 1)
Quarter: 2025Q3

REPORT INFORMATION
  Report Type: Spontaneous
  Country: EU (occurrence: EU)
  Receive Date: 20250722
  Receipt Date: 20250722
  Transmission Date: 20251021
  Serious: Yes (Other)
  Sender: CHEPLAPHARM
  Company Number: None

PATIENT
  Age: 33 Year
  Sex: Male

DRUGS (8)
  1. CLONAZEPAM [Interacting]
     Active Substance: CLONAZEPAM
  2. BROMAZEPAM [Interacting]
     Active Substance: BROMAZEPAM
  3. MIDAZOLAM [Interacting]
     Active Substance: MIDAZOLAM
  4. LYRICA [Suspect]
     Active Substance: PREGABALIN
  5. COCAINE [Suspect]
     Active Substance: COCAINE
  6. CANNABIS SATIVA SUBSP. INDICA TOP [Suspect]
     Active Substance: CANNABIS SATIVA SUBSP. INDICA TOP
  7. LOXAPINE [Interacting]
     Active Substance: LOXAPINE
  8. VALIUM [Interacting]
     Active Substance: DIAZEPAM

REACTIONS (9)
  - Agitation [Recovered/Resolved]
  - Hyperthermia [Recovered/Resolved]
  - Oxygen saturation decreased [Recovered/Resolved]
  - Lactic acidosis [Unknown]
  - Somnolence [Recovered/Resolved]
  - Pneumonia aspiration [Unknown]
  - Drug use disorder [Unknown]
  - Miosis [Unknown]
  - Drug interaction [Unknown]

NARRATIVE: CASE EVENT DATE: 20250330
